FAERS Safety Report 12864275 (Version 1)
Quarter: 2016Q4

REPORT INFORMATION
  Report Type: Spontaneous
  Country: US (occurrence: US)
  Receive Date: 20161020
  Receipt Date: 20161020
  Transmission Date: 20170207
  Serious: Yes (Hospitalization)
  Sender: FDA-Public Use
  Company Number: US-TEVA-671036USA

PATIENT
  Age: 62 Year
  Sex: Female
  Weight: 101.2 kg

DRUGS (9)
  1. FOLIC ACID. [Concomitant]
     Active Substance: FOLIC ACID
     Dates: start: 20140624
  2. OMEPRAZOLE. [Concomitant]
     Active Substance: OMEPRAZOLE
     Dates: start: 1996
  3. METHOTREXATE. [Suspect]
     Active Substance: METHOTREXATE
     Dosage: 2.8571 MILLIGRAM DAILY;
     Route: 048
     Dates: start: 20150328
  4. CELEXA [Concomitant]
     Active Substance: CITALOPRAM HYDROBROMIDE
     Dates: start: 2000
  5. PREDNISONE. [Concomitant]
     Active Substance: PREDNISONE
     Dates: start: 20150510
  6. LISINOPRIL. [Concomitant]
     Active Substance: LISINOPRIL
     Dates: start: 20051207, end: 20151214
  7. TRAMADOL. [Concomitant]
     Active Substance: TRAMADOL
     Dates: start: 20150522
  8. MELOXICAM. [Concomitant]
     Active Substance: MELOXICAM
     Dates: start: 20150522
  9. INFLIXIMAB [Concomitant]
     Active Substance: INFLIXIMAB
     Indication: RHEUMATOID ARTHRITIS
     Dates: start: 20150722, end: 20151221

REACTIONS (1)
  - Bronchitis [Recovered/Resolved]

NARRATIVE: CASE EVENT DATE: 20160309
